FAERS Safety Report 8460744-1 (Version None)
Quarter: 2012Q2

REPORT INFORMATION
  Report Type: 
  Country: None (occurrence: None)
  Receive Date: 20120622
  Receipt Date: 20120619
  Transmission Date: 20120825
  Serious: Yes (Death)
  Sender: FDA-Public Use
  Company Number: SE-AMGEN-SWESP2012033784

PATIENT
  Age: 58 Year
  Sex: Female

DRUGS (9)
  1. XGEVA [Suspect]
     Indication: METASTASES TO BONE
     Dosage: UNK, Q4WK
     Route: 058
     Dates: start: 20120411
  2. LEVOTHYROXINE SODIUM [Concomitant]
     Indication: HYPOTHYROIDISM
  3. PRIMPERAN TAB [Concomitant]
  4. CALCIUM CARBONATE [Concomitant]
     Dosage: UNK UNK, BID
     Route: 048
  5. ZOMETA [Concomitant]
     Dosage: 4 MG, UNK
     Dates: end: 20120507
  6. OMEPRAZOLE [Concomitant]
  7. CALCIUM CARBONATE [Concomitant]
     Dosage: UNK, TID
  8. LYRICA [Concomitant]
  9. BETAPRED [Concomitant]

REACTIONS (2)
  - HYPOCALCAEMIA [None]
  - LUNG CARCINOMA CELL TYPE UNSPECIFIED RECURRENT [None]
